FAERS Safety Report 7365644-6 (Version None)
Quarter: 2011Q1

REPORT INFORMATION
  Report Type: 
  Country: None (occurrence: None)
  Receive Date: 20110316
  Receipt Date: 20110316
  Transmission Date: 20110831
  Serious: Yes (Hospitalization)
  Sender: FDA-Public Use
  Company Number: None

PATIENT
  Sex: Female
  Weight: 85.7298 kg

DRUGS (1)
  1. VIVITROL [Suspect]
     Indication: ALCOHOLISM
     Dosage: 380MG EXTENDED RELEASE 1X MONTH INTRAMUSCULAR
     Route: 030
     Dates: start: 20101216

REACTIONS (3)
  - ABSCESS ORAL [None]
  - ABSCESS STERILE [None]
  - NECROSIS [None]
